FAERS Safety Report 6760963-6 (Version None)
Quarter: 2010Q2

REPORT INFORMATION
  Report Type: 
  Country: None (occurrence: None)
  Receive Date: 20100608
  Receipt Date: 20100526
  Transmission Date: 20101027
  Serious: Yes (Other)
  Sender: FDA-Public Use
  Company Number: A0863149A

PATIENT
  Sex: Female
  Weight: 56 kg

DRUGS (1)
  1. NIQUITIN 21MG [Suspect]
     Indication: SMOKING CESSATION THERAPY
     Dosage: 21MG PER DAY
     Route: 062
     Dates: start: 20100522

REACTIONS (4)
  - DRY MOUTH [None]
  - LOSS OF CONSCIOUSNESS [None]
  - SYNCOPE [None]
  - URINARY INCONTINENCE [None]
